FAERS Safety Report 8849822 (Version 3)
Quarter: 2012Q4

REPORT INFORMATION
  Report Type: 
  Country: US (occurrence: US)
  Receive Date: 20121019
  Receipt Date: 20121105
  Transmission Date: 20130627
  Serious: Yes (Hospitalization)
  Sender: FDA-Public Use
  Company Number: US-GILEAD-2012-0063142

PATIENT
  Age: 40 Year
  Sex: Female

DRUGS (4)
  1. LETAIRIS [Suspect]
     Indication: PULMONARY ARTERIAL HYPERTENSION
     Dosage: 10 mg, UNK
     Route: 048
     Dates: start: 20120721
  2. REMODULIN [Suspect]
     Dosage: UNK
     Dates: start: 20120712, end: 20121030
  3. TYVASO [Concomitant]
     Dates: start: 20121009
  4. ADCIRCA [Concomitant]
     Dosage: 40 mg, QD
     Dates: start: 20120719

REACTIONS (4)
  - Cellulitis [Unknown]
  - Catheter site infection [Unknown]
  - Pulmonary arterial hypertension [Recovered/Resolved]
  - Device related infection [Unknown]
